FAERS Safety Report 7866358-6 (Version None)
Quarter: 2011Q4

REPORT INFORMATION
  Report Type: 
  Country: None (occurrence: None)
  Receive Date: 20111028
  Receipt Date: 20110603
  Transmission Date: 20120403
  Serious: No
  Sender: FDA-Public Use
  Company Number: US-GLAXOSMITHKLINE-A0930176A

PATIENT
  Age: 62 Year
  Sex: Male

DRUGS (3)
  1. ADVAIR DISKUS 100/50 [Suspect]
     Indication: CHRONIC OBSTRUCTIVE PULMONARY DISEASE
     Dosage: 1PUFF TWICE PER DAY
     Route: 055
  2. NEBULIZER [Concomitant]
  3. ALBUTEROL SULFATE [Concomitant]

REACTIONS (5)
  - NECK PAIN [None]
  - INSOMNIA [None]
  - ADVERSE EVENT [None]
  - PRODUCT QUALITY ISSUE [None]
  - INHALATION THERAPY [None]
